FAERS Safety Report 11916409 (Version 1)
Quarter: 2016Q1

REPORT INFORMATION
  Report Type: Spontaneous
  Country: US (occurrence: None)
  Receive Date: 20160112
  Receipt Date: 20160112
  Transmission Date: 20160526
  Serious: Yes (Hospitalization)
  Sender: FDA-Public Use
  Company Number: DL2015-1284

PATIENT
  Age: 34 Year
  Sex: Female

DRUGS (3)
  1. MIFEPRISTONE TABLETS 200 MG DANCO LABS [Suspect]
     Active Substance: MIFEPRISTONE
     Indication: ABORTION INDUCED
     Route: 048
     Dates: start: 20150414
  2. METRONIDAZOLE. [Concomitant]
     Active Substance: METRONIDAZOLE
  3. MISOPROSTOL TABLETS 200 MCG [Suspect]
     Active Substance: MISOPROSTOL
     Route: 002
     Dates: start: 20150415, end: 20150427

REACTIONS (2)
  - Abortion incomplete [None]
  - Haemorrhage [None]

NARRATIVE: CASE EVENT DATE: 20150427
